FAERS Safety Report 9155879 (Version 1)
Quarter: 2013Q1

REPORT INFORMATION
  Report Type: Spontaneous
  Country: MX (occurrence: MX)
  Receive Date: 20130311
  Receipt Date: 20130311
  Transmission Date: 20140127
  Serious: Yes (Hospitalization, Other)
  Sender: FDA-Public Use
  Company Number: PHHY2013MX023359

PATIENT
  Age: 88 Year
  Sex: Male

DRUGS (4)
  1. ONBREZ [Suspect]
     Indication: CHRONIC OBSTRUCTIVE PULMONARY DISEASE
     Dosage: 150 UG, DAILY
     Dates: start: 201201, end: 201212
  2. EUTEBROL [Concomitant]
     Indication: NERVOUS SYSTEM DISORDER
     Dosage: 1 UNK, UNK
  3. CAPTOPRIL [Concomitant]
     Indication: BLOOD PRESSURE
     Dosage: 1 DF, UNK
  4. PLAVIX [Concomitant]
     Indication: NERVOUS SYSTEM DISORDER
     Dosage: 1 DF, UNK

REACTIONS (2)
  - Cerebral infarction [Recovered/Resolved]
  - Limb discomfort [Recovered/Resolved]
